FAERS Safety Report 6354739-1 (Version None)
Quarter: 2009Q3

REPORT INFORMATION
  Report Type: 
  Country: None (occurrence: None)
  Receive Date: 20090914
  Receipt Date: 20090909
  Transmission Date: 20100115
  Serious: Yes (Life-Threatening, Hospitalization)
  Sender: FDA-Public Use
  Company Number: US-B.I. PHARMACEUTICALS,INC./RIDGEFIELD-2009-DE-05921GD

PATIENT
  Age: 72 Year
  Sex: Female

DRUGS (13)
  1. CLONIDINE [Suspect]
     Dosage: 0.6 MG
  2. SERTRALINE HCL [Suspect]
     Dosage: 50 MG
  3. TEKTURNA [Suspect]
     Indication: HYPERTENSION
     Dosage: 150 MG
  4. SOTALOL HYDROCHLORIDE [Suspect]
     Indication: SUPRAVENTRICULAR TACHYCARDIA
     Dosage: 160 MG
  5. METOPROLOL TARTRATE [Suspect]
     Dosage: 75 MG
  6. FUROSEMIDE [Suspect]
     Dosage: 20 MG
  7. AMLODIPINE [Suspect]
     Dosage: 10 MG
  8. METFORMIN HCL [Suspect]
     Indication: DIABETES MELLITUS
     Dosage: 2000 MG
  9. WARFARIN SODIUM [Suspect]
     Dosage: 2.5 MG
  10. OLMESARTAN MEDOXOMIL [Suspect]
     Dosage: 40 MG
  11. POTASSIUM CHLORIDE [Suspect]
     Dosage: 40 MEQ
  12. ASPIRIN [Suspect]
  13. INSULIN [Suspect]
     Indication: DIABETES MELLITUS

REACTIONS (5)
  - CARDIAC ARREST [None]
  - CONFUSIONAL STATE [None]
  - DRUG INTERACTION [None]
  - ELECTROCARDIOGRAM QT PROLONGED [None]
  - TORSADE DE POINTES [None]
